FAERS Safety Report 10786929 (Version 1)
Quarter: 2015Q1

REPORT INFORMATION
  Report Type: Report from Study
  Country: US (occurrence: US)
  Receive Date: 20150211
  Receipt Date: 20150211
  Transmission Date: 20150721
  Serious: Yes (Hospitalization)
  Sender: FDA-Public Use
  Company Number: US-ABBVIE-15K-163-1343043-00

PATIENT
  Sex: Male

DRUGS (2)
  1. HUMIRA [Suspect]
     Active Substance: ADALIMUMAB
     Indication: RHEUMATOID ARTHRITIS
     Route: 065
  2. HUMIRA [Suspect]
     Active Substance: ADALIMUMAB
     Route: 065

REACTIONS (6)
  - Post procedural complication [Unknown]
  - Postoperative wound infection [Unknown]
  - Arthralgia [Recovering/Resolving]
  - Drug effect incomplete [Recovering/Resolving]
  - Impaired healing [Not Recovered/Not Resolved]
  - Synovial cyst [Recovering/Resolving]
